FAERS Safety Report 19844520 (Version 2)
Quarter: 2021Q4

REPORT INFORMATION
  Report Type: Spontaneous
  Country: US (occurrence: US)
  Receive Date: 20210916
  Receipt Date: 20211109
  Transmission Date: 20220303
  Serious: Yes (Other)
  Sender: FDA-Public Use
  Company Number: US-JNJFOC-20210919158

PATIENT
  Age: 5 Decade
  Sex: Male

DRUGS (3)
  1. ELMIRON [Suspect]
     Active Substance: PENTOSAN POLYSULFATE SODIUM
     Indication: Cystitis interstitial
     Route: 048
     Dates: start: 1996, end: 2019
  2. FLUOXETINE [Concomitant]
     Active Substance: FLUOXETINE HYDROCHLORIDE
     Indication: Anxiety
     Route: 065
  3. METFORMIN [Concomitant]
     Active Substance: METFORMIN HYDROCHLORIDE
     Route: 065

REACTIONS (9)
  - Haematochezia [Unknown]
  - Retinal pigmentation [Unknown]
  - Blood urine present [Unknown]
  - Tremor [Unknown]
  - Pain in extremity [Unknown]
  - Myalgia [Unknown]
  - Mental disorder [Not Recovered/Not Resolved]
  - Bladder pain [Unknown]
  - Headache [Unknown]

NARRATIVE: CASE EVENT DATE: 20100101
